FAERS Safety Report 6239212-3 (Version None)
Quarter: 2009Q2

REPORT INFORMATION
  Report Type: 
  Country: None (occurrence: None)
  Receive Date: 20090622
  Receipt Date: 20090612
  Transmission Date: 20091009
  Serious: Yes (Hospitalization, Other)
  Sender: FDA-Public Use
  Company Number: US-PFIZER INC-2009205759

PATIENT
  Sex: Female

DRUGS (2)
  1. LISINOPRIL [Suspect]
  2. VERAPAMIL HCL [Suspect]

REACTIONS (3)
  - DRUG INTOLERANCE [None]
  - PHARYNGEAL OEDEMA [None]
  - SWOLLEN TONGUE [None]
